FAERS Safety Report 23676586 (Version 1)
Quarter: 2024Q1

REPORT INFORMATION
  Report Type: Other
  Country: PT (occurrence: None)
  Receive Date: 20240327
  Receipt Date: 20240327
  Transmission Date: 20240410
  Serious: Yes (Other)
  Sender: FDA-Public Use
  Company Number: PT-ROCHE-3530918

PATIENT
  Age: 61 Year
  Sex: Male

DRUGS (4)
  1. MYCOPHENOLATE MOFETIL [Suspect]
     Active Substance: MYCOPHENOLATE MOFETIL
     Indication: Prophylaxis against transplant rejection
     Route: 065
  2. TACROLIMUS [Suspect]
     Active Substance: TACROLIMUS
     Indication: Prophylaxis against transplant rejection
     Route: 065
  3. PREDNISOLONE [Suspect]
     Active Substance: PREDNISOLONE
     Indication: Prophylaxis against transplant rejection
     Route: 065
  4. EVEROLIMUS [Concomitant]
     Active Substance: EVEROLIMUS

REACTIONS (4)
  - Shock haemorrhagic [Unknown]
  - Cytomegalovirus colitis [Unknown]
  - Clostridium difficile infection [Unknown]
  - Enterocolitis viral [Unknown]
